FAERS Safety Report 5236884-7 (Version None)
Quarter: 2007Q1

REPORT INFORMATION
  Report Type: 
  Country: None (occurrence: None)
  Receive Date: 20070213
  Receipt Date: 20070202
  Transmission Date: 20070707
  Serious: Yes (Hospitalization)
  Sender: FDA-Public Use
  Company Number: PHBS2006JP18186

PATIENT
  Sex: Male

DRUGS (3)
  1. NATEGLINIDE [Suspect]
     Indication: DIABETES MELLITUS
     Route: 048
     Dates: end: 20061107
  2. CALONAL [Concomitant]
  3. KINEDAK [Concomitant]

REACTIONS (3)
  - JAUNDICE [None]
  - LIVER DISORDER [None]
  - LYMPHOCYTE STIMULATION TEST POSITIVE [None]
